FAERS Safety Report 8775776 (Version 1)
Quarter: 2012Q4

REPORT INFORMATION
  Report Type: Report from Study
  Country: US (occurrence: US)
  Receive Date: 20120910
  Receipt Date: 20120910
  Transmission Date: 20130627
  Serious: Yes (Hospitalization)
  Sender: FDA-Public Use
  Company Number: US-BAXTER-2012BAX015054

PATIENT
  Age: 64 Year
  Sex: Male
  Weight: 93.98 kg

DRUGS (3)
  1. CYCLOPHOSPHAMIDE [Suspect]
     Indication: CLL
     Route: 042
     Dates: start: 20110816, end: 20120105
  2. RITUXAN [Suspect]
     Indication: CLL
     Route: 042
     Dates: start: 20110816, end: 20120103
  3. FLUDARABINE [Suspect]
     Indication: CLL
     Route: 042
     Dates: start: 20110816, end: 20120105

REACTIONS (4)
  - Intussusception [Recovered/Resolved]
  - Renal failure chronic [Recovered/Resolved]
  - Chronic obstructive pulmonary disease [Recovered/Resolved]
  - Anaemia [None]
